FAERS Safety Report 25496727 (Version 1)
Quarter: 2025Q3

REPORT INFORMATION
  Report Type: Report from Study
  Country: US (occurrence: US)
  Receive Date: 20250701
  Receipt Date: 20250701
  Transmission Date: 20251020
  Serious: Yes (Other)
  Sender: MALLINCKRODT
  Company Number: US-MALLINCKRODT-MNK202502318

PATIENT
  Sex: Male

DRUGS (1)
  1. CORTICOTROPIN [Suspect]
     Active Substance: CORTICOTROPIN
     Indication: Optic neuritis

REACTIONS (16)
  - Loss of consciousness [Unknown]
  - Multiple fractures [Unknown]
  - Foot fracture [Unknown]
  - Eye pain [Unknown]
  - Muscle spasms [Unknown]
  - Memory impairment [Unknown]
  - Cough [Unknown]
  - Sneezing [Unknown]
  - Visual impairment [Unknown]
  - Brain fog [Unknown]
  - Lacrimation increased [Unknown]
  - Injury [Unknown]
  - Headache [Unknown]
  - Insomnia [Unknown]
  - Therapeutic response shortened [Unknown]
  - Overdose [Unknown]

NARRATIVE: CASE EVENT DATE: 20250101
